FAERS Safety Report 8194270-4 (Version None)
Quarter: 2012Q1

REPORT INFORMATION
  Report Type: 
  Country: None (occurrence: None)
  Receive Date: 20120308
  Receipt Date: 20120228
  Transmission Date: 20120608
  Serious: Yes (Other)
  Sender: FDA-Public Use
  Company Number: JP-JNJFOC-20120300677

PATIENT
  Sex: Female

DRUGS (4)
  1. ALENDRONATE SODIUM [Concomitant]
     Route: 048
  2. METHOTREXATE [Concomitant]
     Route: 048
  3. FOLIC ACID [Concomitant]
  4. STELARA [Suspect]
     Indication: PSORIASIS
     Route: 058
     Dates: start: 20110805

REACTIONS (1)
  - HAEMOGLOBIN DECREASED [None]
